FAERS Safety Report 18321136 (Version 3)
Quarter: 2021Q2

REPORT INFORMATION
  Report Type: Spontaneous
  Country: IN (occurrence: IN)
  Receive Date: 20200928
  Receipt Date: 20210510
  Transmission Date: 20210717
  Serious: Yes (Other)
  Sender: FDA-Public Use
  Company Number: IN-PFIZER INC-2019422448

PATIENT
  Age: 21 Year
  Sex: Female

DRUGS (3)
  1. SUTENT [Suspect]
     Active Substance: SUNITINIB MALATE
     Dosage: 50 MG, CYCLIC (ONCE A DAY 14 DAYS ON 7 DAYS OFF)
     Route: 048
     Dates: start: 20190713
  2. SUTENT [Suspect]
     Active Substance: SUNITINIB MALATE
     Indication: METASTATIC RENAL CELL CARCINOMA
     Dosage: 50 MG, 1X/DAY
     Route: 048
     Dates: start: 20160730
  3. SUTENT [Suspect]
     Active Substance: SUNITINIB MALATE
     Dosage: 37.5 MG, 1X/DAY (2 WEEKS ON AND 1 WEEK OFF, X 4 CYCLES)

REACTIONS (7)
  - Neoplasm progression [Unknown]
  - Constipation [Unknown]
  - Haemorrhage [Unknown]
  - Pericardial effusion [Unknown]
  - Hypertension [Unknown]
  - Abdominal distension [Unknown]
  - Inflammation [Unknown]

NARRATIVE: CASE EVENT DATE: 201909
